FAERS Safety Report 20985624 (Version 1)
Quarter: 2022Q2

REPORT INFORMATION
  Report Type: Spontaneous
  Country: TR (occurrence: TR)
  Receive Date: 20220621
  Receipt Date: 20220621
  Transmission Date: 20220721
  Serious: Yes (Life-Threatening)
  Sender: FDA-Public Use
  Company Number: TR-TEVA-2022-TR-2048429

PATIENT
  Sex: Male
  Weight: 80 kg

DRUGS (1)
  1. LEVOFLOXACIN [Suspect]
     Active Substance: LEVOFLOXACIN
     Indication: Product used for unknown indication
     Route: 048

REACTIONS (5)
  - Decreased appetite [Unknown]
  - Pyrexia [Unknown]
  - Jaundice [Unknown]
  - Ocular icterus [Unknown]
  - Peripheral swelling [Unknown]
